FAERS Safety Report 6253307-X (Version None)
Quarter: 2009Q3

REPORT INFORMATION
  Report Type: 
  Country: None (occurrence: None)
  Receive Date: 20090701
  Receipt Date: 20090619
  Transmission Date: 20100115
  Serious: Yes (Disabling, Other)
  Sender: FDA-Public Use
  Company Number: US-ELI_LILLY_AND_COMPANY-US200906006033

PATIENT
  Sex: Female
  Weight: 87.982 kg

DRUGS (8)
  1. BYETTA [Suspect]
     Indication: TYPE 2 DIABETES MELLITUS
     Dosage: 5 UG, 2/D
     Route: 058
     Dates: start: 20090502, end: 20090602
  2. BYETTA [Suspect]
     Dosage: 10 UG, 2/D
     Route: 058
     Dates: start: 20090603
  3. METHOTREXATE [Concomitant]
     Dosage: UNK, UNKNOWN
  4. SOLU-MEDROL [Concomitant]
     Dosage: UNK, UNKNOWN
  5. ORENCIA [Concomitant]
     Dosage: UNK, UNKNOWN
  6. ENBREL [Concomitant]
     Dosage: UNK, UNKNOWN
  7. HUMIRA [Concomitant]
     Dosage: UNK, EACH MORNING
  8. PREDNISONE [Concomitant]
     Dosage: UNK, UNKNOWN

REACTIONS (15)
  - ASTHMA [None]
  - BLOOD GLUCOSE INCREASED [None]
  - CATARACT [None]
  - DRUG INEFFECTIVE [None]
  - FIBROMYALGIA [None]
  - MEMORY IMPAIRMENT [None]
  - NEUROPATHY PERIPHERAL [None]
  - NODULE [None]
  - OEDEMA PERIPHERAL [None]
  - PAIN IN EXTREMITY [None]
  - REFLUX OESOPHAGITIS [None]
  - RHEUMATOID ARTHRITIS [None]
  - STRESS [None]
  - VISUAL ACUITY REDUCED [None]
  - WALKING DISABILITY [None]
